FAERS Safety Report 4307176-5 (Version None)
Quarter: 2004Q1

REPORT INFORMATION
  Report Type: 
  Country: None (occurrence: None)
  Receive Date: 20040224
  Receipt Date: 20031112
  Transmission Date: 20041129
  Serious: Yes (Hospitalization)
  Sender: FDA-Public Use
  Company Number: 03P-163-0241071-00

PATIENT
  Age: 46 Year
  Sex: Female

DRUGS (3)
  1. DEPAKOTE ER [Suspect]
     Indication: MIGRAINE
     Dosage: 500 MG, 3 IN 1 D, PER ORAL; 500 MG, 2 IN 1 D, PER ORAL
     Route: 048
     Dates: start: 19980101, end: 20031031
  2. DEPAKOTE ER [Suspect]
     Indication: MIGRAINE
     Dosage: 500 MG, 3 IN 1 D, PER ORAL; 500 MG, 2 IN 1 D, PER ORAL
     Route: 048
     Dates: start: 20031031
  3. IMITREX [Concomitant]

REACTIONS (1)
  - PANCREATITIS [None]
